FAERS Safety Report 8309080-4 (Version None)
Quarter: 2012Q2

REPORT INFORMATION
  Report Type: 
  Country: None (occurrence: None)
  Receive Date: 20120424
  Receipt Date: 20120417
  Transmission Date: 20120825
  Serious: Yes (Death, Other)
  Sender: FDA-Public Use
  Company Number: GB-CELGENEUS-167-21880-12042223

PATIENT
  Sex: Female

DRUGS (5)
  1. REVLIMID [Suspect]
     Route: 048
  2. DEXAMETHASONE [Concomitant]
     Dosage: 16 MILLIGRAM
     Route: 065
  3. NALTREXONE HYDROCHLORIDE [Concomitant]
     Indication: CROHN'S DISEASE
     Route: 065
  4. FENTANYL [Concomitant]
     Route: 065
  5. CYCLOPHOSPHAMIDE [Concomitant]
     Route: 065

REACTIONS (1)
  - METASTATIC MALIGNANT MELANOMA [None]
